FAERS Safety Report 12979839 (Version 3)
Quarter: 2018Q4

REPORT INFORMATION
  Report Type: Report from Study
  Country: CN (occurrence: CN)
  Receive Date: 20161128
  Receipt Date: 20181220
  Transmission Date: 20190204
  Serious: Yes (Other)
  Sender: FDA-Public Use
  Company Number: PHHY2016CN159302

PATIENT
  Age: 48 Year
  Sex: Male

DRUGS (78)
  1. TACROLIMUS. [Suspect]
     Active Substance: TACROLIMUS
     Indication: IMMUNOSUPPRESSANT DRUG THERAPY
     Dosage: 6 MG, QD
     Route: 065
     Dates: start: 20160712, end: 20160712
  2. TACROLIMUS. [Suspect]
     Active Substance: TACROLIMUS
     Dosage: 3 MG, QD
     Route: 065
     Dates: start: 20160724, end: 20160728
  3. TACROLIMUS. [Suspect]
     Active Substance: TACROLIMUS
     Dosage: 6 MG, QD
     Route: 065
     Dates: start: 20160815, end: 20160815
  4. TACROLIMUS. [Suspect]
     Active Substance: TACROLIMUS
     Dosage: 4 MG, QD
     Route: 065
     Dates: start: 20160829, end: 20160908
  5. HUMAN-FIBRINOGEN [Concomitant]
     Active Substance: FIBRINOGEN HUMAN
     Indication: HAEMOSTASIS
     Dosage: 1.5 MG, PRN
     Route: 042
     Dates: start: 20160721, end: 20160721
  6. INSULIN                                 /CZE/ [Concomitant]
     Dosage: 12 IU, PRN
     Route: 042
     Dates: start: 20160712, end: 20160712
  7. MECOBALAMIN [Concomitant]
     Active Substance: METHYLCOBALAMIN
     Dosage: 0.5 MG, QD
     Route: 048
     Dates: start: 20160804, end: 20160824
  8. POTASSIUM CHLORIDE. [Concomitant]
     Active Substance: POTASSIUM CHLORIDE
     Indication: ELECTROLYTE IMBALANCE
     Dosage: 12 ML, PRN
     Route: 042
     Dates: start: 20160712, end: 20160712
  9. MYFORTIC [Suspect]
     Active Substance: MYCOPHENOLATE SODIUM
     Dosage: 360 MG, QD
     Route: 065
     Dates: start: 20170120, end: 20170330
  10. METHYLPREDNISOLONE. [Suspect]
     Active Substance: METHYLPREDNISOLONE
     Dosage: 540 MG, QD
     Route: 065
     Dates: start: 20160712, end: 20160713
  11. METHYLPREDNISOLONE. [Suspect]
     Active Substance: METHYLPREDNISOLONE
     Dosage: 280 MG, QD
     Route: 065
     Dates: start: 20160714, end: 20160714
  12. METHYLPREDNISOLONE. [Suspect]
     Active Substance: METHYLPREDNISOLONE
     Dosage: 40 MG, QD
     Route: 065
     Dates: start: 20160715, end: 20160718
  13. PREDNISOLON [Suspect]
     Active Substance: PREDNISOLONE
     Indication: IMMUNOSUPPRESSANT DRUG THERAPY
     Dosage: 15 MG, QD
     Route: 065
     Dates: start: 20160730, end: 20160906
  14. PREDNISOLON [Suspect]
     Active Substance: PREDNISOLONE
     Dosage: 10 MG, QD
     Route: 065
     Dates: start: 20160909
  15. TACROLIMUS. [Suspect]
     Active Substance: TACROLIMUS
     Dosage: 4 MG, QD
     Route: 065
     Dates: start: 20160729, end: 20160805
  16. MAGNESII SULFAS/MAGNESIUM SULFATE [Concomitant]
     Indication: ELECTROLYTE IMBALANCE
     Dosage: 1.6 ML, PRN
     Route: 042
     Dates: start: 20160711, end: 20160711
  17. MAGNESII SULFAS/MAGNESIUM SULFATE [Concomitant]
     Dosage: 3.2 ML, PRN
     Route: 065
     Dates: start: 20160712, end: 20160712
  18. POVIDINE-IODINE [Concomitant]
     Indication: INFECTION PROPHYLAXIS
     Dosage: 100 ML, PRN
     Route: 065
     Dates: start: 20160811, end: 20160811
  19. SODIUM BICARBONATE. [Concomitant]
     Active Substance: SODIUM BICARBONATE
     Indication: ELECTROLYTE IMBALANCE
     Dosage: 125 ML, PRN
     Route: 042
     Dates: start: 20160711, end: 20160711
  20. BERBERINE HYDROCHLORIDE [Concomitant]
     Active Substance: BERBERINE
     Indication: INFECTION
     Dosage: 300 MG, TID
     Route: 048
     Dates: start: 20160906, end: 20160908
  21. LINEZOLID. [Concomitant]
     Active Substance: LINEZOLID
     Indication: INFECTION
     Dosage: 600 MG, Q12H
     Route: 048
     Dates: start: 20160730, end: 20160730
  22. SODIUM PHOSPHATE [Concomitant]
     Active Substance: SODIUM PHOSPHATE
     Indication: GASTRIC LAVAGE
     Dosage: 133 ML, PRN
     Route: 054
     Dates: start: 20160711, end: 20160711
  23. BASILIXIMAB [Suspect]
     Active Substance: BASILIXIMAB
     Indication: IMMUNOSUPPRESSANT DRUG THERAPY
     Dosage: 20 MG, QD
     Route: 065
     Dates: start: 20160715, end: 20160715
  24. TACROLIMUS. [Suspect]
     Active Substance: TACROLIMUS
     Dosage: 4 MG, QD
     Route: 065
     Dates: start: 20160713, end: 20160714
  25. TACROLIMUS. [Suspect]
     Active Substance: TACROLIMUS
     Dosage: 3 MG,QD
     Route: 065
     Dates: start: 20160715, end: 20160718
  26. ALBUMIN [Concomitant]
     Active Substance: ALBUMIN HUMAN
     Indication: PRODUCT USED FOR UNKNOWN INDICATION
     Dosage: 10 G, QD
     Route: 042
     Dates: start: 20160712, end: 20160724
  27. ALPROSTADIL. [Concomitant]
     Active Substance: ALPROSTADIL
     Indication: CARDIOVASCULAR INSUFFICIENCY
     Dosage: 20 UG, QD
     Route: 042
     Dates: start: 20160712, end: 20160819
  28. BICYCLOL [Concomitant]
     Active Substance: BICYCLOL
     Indication: PROPHYLAXIS
     Dosage: 25 MG, TID
     Route: 048
     Dates: start: 20160808, end: 20160819
  29. CALCIUM [Concomitant]
     Active Substance: CALCIUM
     Indication: PROPHYLAXIS
     Dosage: 3000 MG, QD
     Route: 042
     Dates: start: 20160712, end: 20160713
  30. FUROSEMIDE. [Concomitant]
     Active Substance: FUROSEMIDE
     Indication: POLYURIA
     Dosage: 80 MG, PRN
     Route: 042
     Dates: start: 20160711, end: 20160711
  31. MANNITOL. [Concomitant]
     Active Substance: MANNITOL
     Indication: SURGICAL PRECONDITIONING
     Dosage: 125 ML, PRN
     Route: 042
     Dates: start: 20160711, end: 20160711
  32. TAMSULOSIN [Concomitant]
     Active Substance: TAMSULOSIN
     Dosage: 0.2 MG, UNK
     Route: 048
     Dates: start: 20160907
  33. DEXAMETASON [Concomitant]
     Active Substance: DEXAMETHASONE
     Indication: SURGICAL PRECONDITIONING
     Dosage: 10 MG, PRN
     Route: 042
     Dates: start: 20160711, end: 20160711
  34. DILTIAZEM. [Concomitant]
     Active Substance: DILTIAZEM
     Indication: PROPHYLAXIS
     Dosage: 30 MG, BID
     Route: 048
     Dates: start: 20160724
  35. OMEPRAZOL [Concomitant]
     Active Substance: OMEPRAZOLE
     Indication: ANTACID THERAPY
     Dosage: 40 MG, QD
     Route: 042
     Dates: start: 20160712, end: 20160802
  36. GLUTATHIONE [Concomitant]
     Active Substance: GLUTATHIONE
     Indication: PROPHYLAXIS
     Dosage: 1200 MG, QD
     Route: 042
     Dates: start: 20160724, end: 20160819
  37. SODIUM CHLORIDE. [Concomitant]
     Active Substance: SODIUM CHLORIDE
     Indication: ELECTROLYTE IMBALANCE
     Dosage: 500 ML, PRN
     Route: 042
     Dates: start: 20160722, end: 20160722
  38. SODIUM PHOSPHATE [Concomitant]
     Active Substance: SODIUM PHOSPHATE
     Dosage: 133 ML, PRN
     Route: 054
     Dates: start: 20160713, end: 20160713
  39. VITAMIN B4 [Concomitant]
     Indication: PROPHYLAXIS
     Dosage: 10 MG, UNK
     Route: 048
     Dates: start: 20160812, end: 20160824
  40. SODIUM CHLORIDE. [Concomitant]
     Active Substance: SODIUM CHLORIDE
     Indication: ELECTROLYTE IMBALANCE
     Dosage: 500 ML, PRN
     Route: 042
     Dates: start: 20160711, end: 20160711
  41. MYFORTIC [Suspect]
     Active Substance: MYCOPHENOLATE SODIUM
     Indication: RENAL TRANSPLANT
     Dosage: 1440 MG, QD
     Route: 065
     Dates: start: 20160711, end: 20160718
  42. TACROLIMUS. [Suspect]
     Active Substance: TACROLIMUS
     Dosage: 1 MG, QD
     Route: 065
     Dates: start: 20160719, end: 20160723
  43. TACROLIMUS. [Suspect]
     Active Substance: TACROLIMUS
     Dosage: 11 MG, QD
     Route: 065
     Dates: start: 20160816, end: 20160816
  44. TACROLIMUS. [Suspect]
     Active Substance: TACROLIMUS
     Dosage: 5 MG, QD
     Route: 065
     Dates: start: 20160909
  45. SODIUM BICARBONATE. [Concomitant]
     Active Substance: SODIUM BICARBONATE
     Dosage: 250 ML, PRN
     Route: 065
     Dates: start: 20160712, end: 20160712
  46. AMIKACIN. [Concomitant]
     Active Substance: AMIKACIN
     Indication: SURGICAL PRECONDITIONING
     Dosage: 400 MG, PRN
     Route: 042
     Dates: start: 20160711, end: 20160711
  47. AVELOX [Concomitant]
     Active Substance: MOXIFLOXACIN HYDROCHLORIDE
     Indication: INFECTION
     Dosage: 400 MG, QD
     Route: 065
     Dates: start: 20160711, end: 20160722
  48. CASPOFUNGIN ACETATE. [Concomitant]
     Active Substance: CASPOFUNGIN ACETATE
     Indication: INFECTION
     Dosage: 50 MG, QD
     Route: 042
     Dates: start: 20160711, end: 20160713
  49. FLAVOXATE HCL [Concomitant]
     Indication: PROPHYLAXIS
     Dosage: 400 MG, TID
     Route: 048
     Dates: start: 20160713, end: 20160802
  50. LEVOFLOXACIN HYDROCHLORIDE [Concomitant]
     Active Substance: LEVOFLOXACIN HYDROCHLORIDE
     Indication: INFECTION
     Dosage: 200 MG, QD
     Route: 065
     Dates: start: 20160808, end: 20160811
  51. RECOMBINANT HUMAN ERYTHROPOIETIN [Concomitant]
     Active Substance: ERYTHROPOIETIN
     Indication: PROPHYLAXIS
     Dosage: 6000 IU, W3D1
     Route: 042
     Dates: start: 20160812, end: 20160909
  52. TERAZOSIN HYDROCHLORIDE. [Concomitant]
     Active Substance: TERAZOSIN HYDROCHLORIDE
     Indication: HYPERTENSION
     Dosage: 2 MG, QN
     Route: 048
     Dates: start: 20160816, end: 20160817
  53. MYFORTIC [Suspect]
     Active Substance: MYCOPHENOLATE SODIUM
     Indication: IMMUNOSUPPRESSANT DRUG THERAPY
     Dosage: 1080 MG, QD
     Route: 065
     Dates: start: 20160719, end: 20161006
  54. ALPAX/ALPRAZOLAM [Concomitant]
     Indication: SEDATION
     Dosage: 0.4 MG, QN
     Route: 048
     Dates: start: 20160712, end: 20160804
  55. BERAPROST SODIUM [Concomitant]
     Active Substance: BERAPROST SODIUM
     Indication: PROPHYLAXIS
     Dosage: 20 UG, BID
     Route: 048
     Dates: start: 20160819
  56. FUROSEMIDE. [Concomitant]
     Active Substance: FUROSEMIDE
     Dosage: 40 MG, PRN
     Route: 042
     Dates: start: 20160718, end: 20160718
  57. HEPARIN SODIUM. [Concomitant]
     Active Substance: HEPARIN SODIUM
     Indication: PROPHYLAXIS
     Dosage: 12500 IU,W2D3
     Route: 042
     Dates: start: 20160713, end: 20160719
  58. INSULIN                                 /CZE/ [Concomitant]
     Indication: ELECTROLYTE IMBALANCE
     Dosage: 6 IU, PRN
     Route: 042
     Dates: start: 20160711, end: 20160711
  59. MECOBALAMIN [Concomitant]
     Active Substance: METHYLCOBALAMIN
     Indication: SUPPLEMENTATION THERAPY
     Dosage: 0.5 MG, TID
     Route: 048
     Dates: start: 20160715, end: 20160804
  60. VORICONAZOLE. [Concomitant]
     Active Substance: VORICONAZOLE
     Indication: INFECTION
     Dosage: 200 MG, Q12H
     Route: 042
     Dates: start: 20160713, end: 20160724
  61. MYFORTIC [Suspect]
     Active Substance: MYCOPHENOLATE SODIUM
     Dosage: 720 MG, QD
     Route: 065
     Dates: start: 20161007, end: 20170119
  62. TACROLIMUS. [Suspect]
     Active Substance: TACROLIMUS
     Dosage: 5 MG, QD
     Route: 065
     Dates: start: 20160806, end: 20160814
  63. TACROLIMUS. [Suspect]
     Active Substance: TACROLIMUS
     Dosage: 5 MG, QD
     Route: 065
     Dates: start: 20160825, end: 20160828
  64. ANISODAMINE [Concomitant]
     Active Substance: ANISODAMINE
     Indication: SEIZURE
     Dosage: 10 MG, PRN
     Route: 030
     Dates: start: 20160714, end: 20160714
  65. FINASTERID [Concomitant]
     Active Substance: FINASTERIDE
     Indication: URINARY RETENTION
     Dosage: 5 MG, QN
     Route: 048
     Dates: start: 20160728
  66. LACTULOSA [Concomitant]
     Active Substance: LACTULOSE
     Indication: CONSTIPATION
     Dosage: 15 ML, TID
     Route: 048
     Dates: start: 20160714, end: 20160716
  67. LINEZOLID. [Concomitant]
     Active Substance: LINEZOLID
     Dosage: 600 MG, PRN
     Route: 048
     Dates: start: 20160730, end: 20160808
  68. SODIUM CHLORIDE. [Concomitant]
     Active Substance: SODIUM CHLORIDE
     Dosage: 500 ML, TID
     Route: 065
     Dates: start: 20160713, end: 20160713
  69. BASILIXIMAB [Suspect]
     Active Substance: BASILIXIMAB
     Indication: RENAL TRANSPLANT
     Dosage: 20 MG, QD
     Route: 065
     Dates: start: 20160711, end: 20160711
  70. METHYLPREDNISOLONE. [Suspect]
     Active Substance: METHYLPREDNISOLONE
     Indication: IMMUNOSUPPRESSANT DRUG THERAPY
     Dosage: 660 MG, QD
     Route: 065
     Dates: start: 20160711, end: 20160711
  71. METHYLPREDNISOLONE. [Suspect]
     Active Substance: METHYLPREDNISOLONE
     Dosage: 20 MG, QD
     Route: 065
     Dates: start: 20160719, end: 20160730
  72. TACROLIMUS. [Suspect]
     Active Substance: TACROLIMUS
     Dosage: 6 MG, QD
     Route: 065
     Dates: start: 20160817, end: 20160824
  73. DIAZEPAM. [Concomitant]
     Active Substance: DIAZEPAM
     Indication: SEDATION
     Dosage: 5 MG, PRN
     Route: 048
     Dates: start: 20160711, end: 20160711
  74. ESOMEPRAZOL [Concomitant]
     Active Substance: ESOMEPRAZOLE
     Indication: GASTRITIS PROPHYLAXIS
     Dosage: 20 MG, QD
     Route: 048
     Dates: start: 20160802, end: 20160909
  75. FUROSEMIDE. [Concomitant]
     Active Substance: FUROSEMIDE
     Dosage: 40 MG, QD
     Route: 042
     Dates: start: 20160718, end: 20160724
  76. HEPATITIS B IMMUNE GLOBULIN [Concomitant]
     Active Substance: HUMAN HEPATITIS B VIRUS IMMUNE GLOBULIN
     Indication: ANTIVIRAL PROPHYLAXIS
     Dosage: UNK
     Route: 030
     Dates: start: 20160712, end: 20160712
  77. LEUCOGEN [Concomitant]
     Active Substance: LEUCOGEN
     Indication: PROPHYLAXIS
     Dosage: 20 MG, TID
     Route: 048
     Dates: start: 20160812, end: 20160824
  78. TAMSULOSIN [Concomitant]
     Active Substance: TAMSULOSIN
     Indication: DYSURIA
     Dosage: 0.2 MG, QN
     Route: 048
     Dates: start: 20160718, end: 20160824

REACTIONS (13)
  - Blood albumin increased [Unknown]
  - Liver function test abnormal [Recovered/Resolved]
  - Abdominal pain upper [Recovering/Resolving]
  - Blood glucose increased [Unknown]
  - Red blood cells urine positive [Unknown]
  - Bilirubin conjugated increased [Unknown]
  - Low density lipoprotein increased [Unknown]
  - Blood urea increased [Unknown]
  - Neutrophil count increased [Unknown]
  - Blood creatinine increased [Unknown]
  - Blood cholesterol increased [Unknown]
  - Lymphocyte count decreased [Unknown]
  - Protein urine present [Unknown]

NARRATIVE: CASE EVENT DATE: 20160713
